FAERS Safety Report 11168084 (Version 1)
Quarter: 2015Q2

REPORT INFORMATION
  Report Type: Spontaneous
  Country: US (occurrence: None)
  Receive Date: 20150515
  Receipt Date: 20150515
  Transmission Date: 20150821
  Serious: Yes (Other)
  Sender: FDA-Public Use
  Company Number: 2014010859

PATIENT
  Age: 13 Year
  Sex: Male

DRUGS (1)
  1. CIMZIA [Suspect]
     Active Substance: CERTOLIZUMAB PEGOL
     Route: 058
     Dates: start: 20140602

REACTIONS (2)
  - Clostridium difficile infection [None]
  - Off label use [None]

NARRATIVE: CASE EVENT DATE: 20140602
